FAERS Safety Report 13656025 (Version 7)
Quarter: 2018Q1

REPORT INFORMATION
  Report Type: Report from Study
  Country: BR (occurrence: BR)
  Receive Date: 20170615
  Receipt Date: 20180301
  Transmission Date: 20180508
  Serious: Yes (Other)
  Sender: FDA-Public Use
  Company Number: BR-SA-2017SA102825

PATIENT
  Age: 26 Year
  Sex: Female
  Weight: 60 kg

DRUGS (3)
  1. METIL [Suspect]
     Active Substance: PROCHLORPERAZINE MALEATE
     Indication: MULTIPLE SCLEROSIS RELAPSE
     Route: 065
  2. LEMTRADA [Suspect]
     Active Substance: ALEMTUZUMAB
     Indication: MULTIPLE SCLEROSIS
     Dosage: DOSE:2ND CYCLE / 3 VIALS
     Route: 041
     Dates: start: 20170509, end: 20170511
  3. LEMTRADA [Suspect]
     Active Substance: ALEMTUZUMAB
     Indication: MULTIPLE SCLEROSIS
     Dosage: DOSE:5 VIALS PER INFUSION
     Route: 041
     Dates: start: 20160516, end: 20160520

REACTIONS (31)
  - Ill-defined disorder [Unknown]
  - Paraesthesia oral [Unknown]
  - Urinary tract disorder [Not Recovered/Not Resolved]
  - Laceration [Not Recovered/Not Resolved]
  - Menorrhagia [Unknown]
  - Multiple sclerosis relapse [Unknown]
  - Balance disorder [Not Recovered/Not Resolved]
  - Choking [Unknown]
  - Abnormal faeces [Not Recovered/Not Resolved]
  - Discomfort [Unknown]
  - Vision blurred [Not Recovered/Not Resolved]
  - Alopecia [Unknown]
  - Weight decreased [Not Recovered/Not Resolved]
  - Headache [Not Recovered/Not Resolved]
  - Polymenorrhoea [Unknown]
  - Vomiting [Unknown]
  - Eye pain [Recovered/Resolved]
  - Herpes virus infection [Not Recovered/Not Resolved]
  - Skin fissures [Not Recovered/Not Resolved]
  - Wound [Recovered/Resolved]
  - Arrhythmia [Not Recovered/Not Resolved]
  - Erythema [Not Recovered/Not Resolved]
  - Lymphocyte count decreased [Unknown]
  - Dizziness [Not Recovered/Not Resolved]
  - Hypoaesthesia [Not Recovered/Not Resolved]
  - Paraesthesia [Unknown]
  - Malaise [Unknown]
  - Urticaria [Not Recovered/Not Resolved]
  - Fungal infection [Not Recovered/Not Resolved]
  - Pain in extremity [Recovered/Resolved]
  - Nail disorder [Not Recovered/Not Resolved]

NARRATIVE: CASE EVENT DATE: 2017
